FAERS Safety Report 9852980 (Version 1)
Quarter: 2014Q1

REPORT INFORMATION
  Report Type: Spontaneous
  Country: AU (occurrence: None)
  Receive Date: 20140127
  Receipt Date: 20140127
  Transmission Date: 20141002
  Serious: Yes (Other)
  Sender: FDA-Public Use
  Company Number: 2013000423

PATIENT
  Sex: Female

DRUGS (5)
  1. ACEON (PERINDOPRIL ERBUMINE) TABLET [Suspect]
     Indication: PRODUCT USED FOR UNKNOWN INDICATION
  2. ISOPTIN [Suspect]
     Indication: PRODUCT USED FOR UNKNOWN INDICATION
  3. PROVERA [Suspect]
     Indication: PRODUCT USED FOR UNKNOWN INDICATION
  4. DIETHYLSTILBESTROL [Suspect]
     Indication: PRODUCT USED FOR UNKNOWN INDICATION
  5. DIETHYLSTILBESTROL [Suspect]

REACTIONS (2)
  - Urticaria [None]
  - Angioedema [None]
